FAERS Safety Report 9191598 (Version 3)
Quarter: 2013Q2

REPORT INFORMATION
  Report Type: Spontaneous
  Country: US (occurrence: US)
  Receive Date: 20130326
  Receipt Date: 20130529
  Transmission Date: 20140414
  Serious: Yes (Hospitalization)
  Sender: FDA-Public Use
  Company Number: US-ACTELION-A-US2013-79989

PATIENT
  Age: 63 Year
  Sex: Male

DRUGS (27)
  1. TRACLEER [Suspect]
     Indication: PULMONARY ARTERIAL HYPERTENSION
     Dosage: 125 MG, BID
     Route: 048
     Dates: start: 2012, end: 20130328
  2. TRACLEER [Suspect]
     Dosage: 62.5 UNK, UNK
     Route: 048
     Dates: start: 201209, end: 2012
  3. COUMADIN [Concomitant]
     Dosage: 5 MG, UNK
  4. LIPITOR [Concomitant]
  5. POTASSIUM [Concomitant]
  6. BUMETANIDE [Concomitant]
  7. AMIODARONE [Concomitant]
  8. OMEPRAZOLE [Concomitant]
  9. XANAX [Concomitant]
  10. ZOLOFT [Concomitant]
  11. AMBIEN [Concomitant]
  12. DIGOXIN [Concomitant]
  13. MULTIVITAMIN [Concomitant]
  14. SPIRONOLACTONE [Concomitant]
  15. ASPIRIN [Concomitant]
  16. LORATADINE [Concomitant]
  17. HUMULIN [Concomitant]
  18. LANTUS [Concomitant]
  19. MELATONIN [Concomitant]
  20. TYVASO [Concomitant]
  21. LASIX [Concomitant]
     Dosage: 40 MG, OD
  22. HUMALOG [Concomitant]
  23. METOPROLOL [Concomitant]
     Dosage: 12.5 MG, BID
  24. SPIRIVA [Concomitant]
     Dosage: 18 MCG, OD
  25. VITAMIN B12 [Concomitant]
  26. ADCIRCA [Concomitant]
  27. OXYGEN [Concomitant]

REACTIONS (21)
  - Upper gastrointestinal haemorrhage [Unknown]
  - Cardiac enzymes increased [Recovered/Resolved]
  - Anaemia [Recovering/Resolving]
  - Dyspnoea [Unknown]
  - Oedema [Unknown]
  - Transfusion [Unknown]
  - Anxiety [Not Recovered/Not Resolved]
  - Red blood cell count decreased [Recovering/Resolving]
  - Fatigue [Not Recovered/Not Resolved]
  - Asthenia [Not Recovered/Not Resolved]
  - Swelling [Not Recovered/Not Resolved]
  - Localised intraabdominal fluid collection [Recovering/Resolving]
  - Colon polypectomy [Recovered/Resolved]
  - Stomach lesion excision [Recovered/Resolved]
  - Weight increased [Not Recovered/Not Resolved]
  - Fluid retention [Unknown]
  - Haemoglobin decreased [Recovering/Resolving]
  - Oedema peripheral [Not Recovered/Not Resolved]
  - Ascites [Recovering/Resolving]
  - Syncope [Unknown]
  - Hypoxia [Unknown]
